APPROVED DRUG PRODUCT: AMINOPHYLLINE
Active Ingredient: AMINOPHYLLINE
Strength: 200MG
Dosage Form/Route: TABLET;ORAL
Application: A088183 | Product #001
Applicant: DURAMED PHARMACEUTICALS INC SUB BARR LABORATORIES INC
Approved: Mar 31, 1983 | RLD: No | RS: No | Type: DISCN